FAERS Safety Report 10757809 (Version 1)
Quarter: 2015Q1

REPORT INFORMATION
  Report Type: Spontaneous
  Country: US (occurrence: US)
  Receive Date: 20150203
  Receipt Date: 20150203
  Transmission Date: 20150721
  Serious: Yes (Other)
  Sender: FDA-Public Use
  Company Number: US-TEVA-537227USA

PATIENT
  Age: 44 Year
  Sex: Female

DRUGS (1)
  1. COPAXONE [Suspect]
     Active Substance: GLATIRAMER ACETATE
     Indication: MULTIPLE SCLEROSIS
     Dates: start: 20140505, end: 20141031

REACTIONS (6)
  - Multiple sclerosis relapse [Unknown]
  - Sjogren^s syndrome [Unknown]
  - Injection site nodule [Recovered/Resolved]
  - Scleroderma [Unknown]
  - Injection site discolouration [Not Recovered/Not Resolved]
  - Injection site pain [Recovered/Resolved]

NARRATIVE: CASE EVENT DATE: 201410
